FAERS Safety Report 9431182 (Version 1)
Quarter: 2013Q3

REPORT INFORMATION
  Report Type: Spontaneous
  Country: FR (occurrence: US)
  Receive Date: 20130730
  Receipt Date: 20130730
  Transmission Date: 20140515
  Serious: Yes (Hospitalization, Other)
  Sender: FDA-Public Use
  Company Number: US-PFIZER INC-2013213088

PATIENT
  Age: 60 Year
  Sex: Female

DRUGS (3)
  1. RIFAMPIN [Suspect]
     Indication: TUBERCULOSIS
     Dosage: 600 MG, 1X/DAY
  2. ISONIAZID [Suspect]
     Indication: TUBERCULOSIS
     Dosage: 300 MG, 1X/DAY
  3. PYRAZINAMIDE [Suspect]
     Indication: TUBERCULOSIS
     Dosage: 1.5 G, 1X/DAY

REACTIONS (2)
  - Coma [Recovered/Resolved]
  - Hepatic encephalopathy [Recovered/Resolved]
